FAERS Safety Report 24029481 (Version 3)
Quarter: 2024Q3

REPORT INFORMATION
  Report Type: Spontaneous
  Country: JP (occurrence: None)
  Receive Date: 20240628
  Receipt Date: 20240906
  Transmission Date: 20241016
  Serious: Yes (Hospitalization)
  Sender: ASTRAZENECA
  Company Number: 2024A146038

PATIENT
  Age: 2 Month

DRUGS (6)
  1. BEYFORTUS [Suspect]
     Active Substance: NIRSEVIMAB-ALIP
     Indication: Antiviral prophylaxis
     Dosage: DOSE UNKNOWN50.0MG UNKNOWN
     Route: 030
     Dates: start: 20240606, end: 20240606
  2. INCREMIN [Concomitant]
     Indication: Anaemia
     Route: 048
     Dates: start: 20240408
  3. HERBAL NOS [Concomitant]
     Active Substance: HERBALS
     Indication: Gastrooesophageal reflux disease
     Route: 048
     Dates: start: 20240410
  4. HERBALS [Concomitant]
     Active Substance: HERBALS
     Indication: Gastrooesophageal reflux disease
     Route: 048
     Dates: start: 20240410
  5. MOSAPRIDE CITRATE [Concomitant]
     Active Substance: MOSAPRIDE CITRATE
     Indication: Gastrooesophageal reflux disease
     Route: 048
     Dates: start: 20240503
  6. MENATETRENONE [Concomitant]
     Active Substance: MENATETRENONE
     Indication: Haemorrhage prophylaxis
     Route: 048
     Dates: start: 20240320, end: 20240610

REACTIONS (1)
  - Respiratory syncytial virus infection [Recovered/Resolved]

NARRATIVE: CASE EVENT DATE: 20240615
